FAERS Safety Report 15947773 (Version 1)
Quarter: 2019Q1

REPORT INFORMATION
  Report Type: Report from Study
  Country: US (occurrence: US)
  Receive Date: 20190211
  Receipt Date: 20190211
  Transmission Date: 20190417
  Serious: Yes (Hospitalization)
  Sender: FDA-Public Use
  Company Number: US-ACTELION-A-NJ2018-182238

PATIENT
  Age: 65 Year
  Sex: Female

DRUGS (5)
  1. SODIUM CHLORIDE. [Concomitant]
     Active Substance: SODIUM CHLORIDE
  2. IPRATROPIUM BROMIDE AND ALBUTEROL SULFATE [Concomitant]
     Active Substance: ALBUTEROL SULFATE\IPRATROPIUM BROMIDE
  3. OXYGEN. [Concomitant]
     Active Substance: OXYGEN
     Dosage: 6 L, PER MIN
  4. ALBUTEROL. [Concomitant]
     Active Substance: ALBUTEROL
  5. OPSUMIT [Suspect]
     Active Substance: MACITENTAN
     Indication: PULMONARY ARTERIAL HYPERTENSION
     Dosage: 10 MG, QD
     Route: 048
     Dates: start: 20180824

REACTIONS (8)
  - Nasopharyngitis [Not Recovered/Not Resolved]
  - Lung infection [Unknown]
  - Dyspnoea [Unknown]
  - Bronchitis [Unknown]
  - Influenza [Unknown]
  - Viral infection [Unknown]
  - Oxygen consumption decreased [Unknown]
  - Anaemia [Unknown]

NARRATIVE: CASE EVENT DATE: 201810
